FAERS Safety Report 17064701 (Version 2)
Quarter: 2019Q4

REPORT INFORMATION
  Report Type: Spontaneous
  Country: US (occurrence: US)
  Receive Date: 20191122
  Receipt Date: 20191202
  Transmission Date: 20200122
  Serious: No
  Sender: FDA-Public Use
  Company Number: US-PFIZER INC-2019504002

PATIENT
  Age: 73 Year
  Sex: Female
  Weight: 52.43 kg

DRUGS (4)
  1. SILDENAFIL CITRATE. [Suspect]
     Active Substance: SILDENAFIL CITRATE
     Dosage: UNK
  2. ORENITRAM [Suspect]
     Active Substance: TREPROSTINIL
     Dosage: UNK, 2X/DAY
  3. REVATIO [Suspect]
     Active Substance: SILDENAFIL CITRATE
     Dosage: UNK
  4. ORENITRAM [Suspect]
     Active Substance: TREPROSTINIL
     Indication: PULMONARY ARTERIAL HYPERTENSION
     Dosage: 2.5 MG, 3X/DAY
     Route: 048
     Dates: start: 20190205

REACTIONS (6)
  - Restlessness [Unknown]
  - Dyspnoea exertional [Unknown]
  - Diarrhoea [Unknown]
  - Vision blurred [Unknown]
  - Headache [Unknown]
  - Flushing [Unknown]
